FAERS Safety Report 7176868-5 (Version None)
Quarter: 2010Q4

REPORT INFORMATION
  Report Type: 
  Country: None (occurrence: None)
  Receive Date: 20101216
  Receipt Date: 20101216
  Transmission Date: 20110411
  Serious: Yes (Life-Threatening, Hospitalization)
  Sender: FDA-Public Use
  Company Number: None

PATIENT
  Age: 93 Year
  Sex: Female
  Weight: 54.4316 kg

DRUGS (1)
  1. PIROXICAM [Suspect]
     Indication: ARTHRALGIA
     Dosage: 1 EVERY MORNING PO
     Route: 048
     Dates: start: 20100922, end: 20101006

REACTIONS (1)
  - ULCER HAEMORRHAGE [None]
